FAERS Safety Report 7921286-2 (Version None)
Quarter: 2011Q4

REPORT INFORMATION
  Report Type: 
  Country: None (occurrence: None)
  Receive Date: 20111117
  Receipt Date: 20111114
  Transmission Date: 20120403
  Serious: No
  Sender: FDA-Public Use
  Company Number: US-PFIZER INC-2011278519

PATIENT
  Age: 45 Year
  Sex: Female
  Weight: 54.4 kg

DRUGS (4)
  1. CYTOMEL [Interacting]
     Indication: THYROID DISORDER
     Dosage: UNK
     Dates: start: 20110101
  2. CENTRUM SILVER ULTRA WOMEN'S [Interacting]
     Dosage: UNK
     Dates: end: 20111101
  3. LEVOXYL [Suspect]
     Indication: THYROID DISORDER
     Dosage: UNK
  4. CENTRUM ULTRA WOMEN'S [Interacting]
     Dosage: UNK
     Dates: end: 20111101

REACTIONS (3)
  - MALABSORPTION [None]
  - DRUG INTERACTION [None]
  - MALAISE [None]
